FAERS Safety Report 17638351 (Version 1)
Quarter: 2020Q2

REPORT INFORMATION
  Report Type: Spontaneous
  Country: US (occurrence: US)
  Receive Date: 20200407
  Receipt Date: 20200407
  Transmission Date: 20200713
  Serious: Yes (Hospitalization, Other)
  Sender: FDA-Public Use
  Company Number: US-APOTEX-2020AP009475

PATIENT
  Age: 15 Year
  Sex: Male

DRUGS (2)
  1. RISPERIDONE. [Suspect]
     Active Substance: RISPERIDONE
     Indication: PRODUCT USED FOR UNKNOWN INDICATION
     Dosage: UNK
     Route: 065
  2. RISPERIDONE. [Suspect]
     Active Substance: RISPERIDONE
     Dosage: DOSE INCREASED, UNK
     Route: 065

REACTIONS (5)
  - Respiratory failure [Recovering/Resolving]
  - Hypothermia [Recovering/Resolving]
  - Cardiac arrest [Recovering/Resolving]
  - Multiple organ dysfunction syndrome [Recovering/Resolving]
  - Encephalopathy [Recovering/Resolving]
